FAERS Safety Report 19169072 (Version 1)
Quarter: 2021Q2

REPORT INFORMATION
  Report Type: Spontaneous
  Country: FR (occurrence: FR)
  Receive Date: 20210422
  Receipt Date: 20210422
  Transmission Date: 20210717
  Serious: Yes (Hospitalization)
  Sender: FDA-Public Use
  Company Number: FR-TEVA-2021-FR-1902594

PATIENT
  Age: 64 Year
  Sex: Male
  Weight: 112 kg

DRUGS (10)
  1. PROCORALAN [Concomitant]
     Active Substance: IVABRADINE
  2. CLOPIDOGREL (BESILATE DE) [Suspect]
     Active Substance: CLOPIDOGREL BESILATE
     Indication: MYOCARDIAL ISCHAEMIA
     Dosage: 1DF
     Route: 048
     Dates: end: 20180704
  3. AMLODIPINE [Concomitant]
     Active Substance: AMLODIPINE BESYLATE
  4. HYTACAND [Concomitant]
     Active Substance: CANDESARTAN CILEXETIL\HYDROCHLOROTHIAZIDE
  5. METFORMINE [Concomitant]
     Active Substance: METFORMIN HYDROCHLORIDE
  6. INSULINE [Concomitant]
     Active Substance: INSULIN NOS
  7. ULTIBRO BREEZHALER [Concomitant]
     Active Substance: GLYCOPYRRONIUM\INDACATEROL
  8. TARDYFERON [Concomitant]
     Active Substance: FERROUS SULFATE
  9. XELEVIA [Concomitant]
     Active Substance: SITAGLIPTIN PHOSPHATE
  10. SIMVASTATINE [Concomitant]
     Active Substance: SIMVASTATIN

REACTIONS (1)
  - Haemoptysis [Recovered/Resolved]

NARRATIVE: CASE EVENT DATE: 20180704
